FAERS Safety Report 10007144 (Version 1)
Quarter: 2014Q1

REPORT INFORMATION
  Report Type: Report from Study
  Country: US (occurrence: US)
  Receive Date: 20140313
  Receipt Date: 20140313
  Transmission Date: 20141002
  Serious: Yes (Hospitalization)
  Sender: FDA-Public Use
  Company Number: US-JNJFOC-20140305540

PATIENT
  Age: 16 Year
  Sex: Male
  Weight: 95.6 kg

DRUGS (14)
  1. REMICADE [Suspect]
     Indication: CROHN^S DISEASE
     Route: 042
     Dates: start: 20081215, end: 20090122
  2. HUMIRA [Concomitant]
     Route: 065
     Dates: start: 20100407
  3. PREDNISONE [Concomitant]
     Route: 065
  4. 5-ASA [Concomitant]
     Route: 048
  5. OMEPRAZOLE [Concomitant]
     Route: 065
  6. FOLIC ACID [Concomitant]
     Route: 065
  7. CALCIUM AND VITAMIN D [Concomitant]
     Route: 065
  8. CHOLECALCIFEROL [Concomitant]
     Route: 065
  9. ACETAMINOPHEN [Concomitant]
     Route: 065
  10. ONDANSETRON [Concomitant]
     Route: 065
  11. DICYCLOMINE [Concomitant]
     Route: 065
  12. TOPIRAMATE [Concomitant]
     Route: 065
  13. HYDROXYZINE [Concomitant]
     Route: 065
  14. CHOLESTYRAMINE [Concomitant]
     Route: 065

REACTIONS (1)
  - Irritable bowel syndrome [Recovered/Resolved]
